FAERS Safety Report 22625089 (Version 1)
Quarter: 2023Q2

REPORT INFORMATION
  Report Type: Spontaneous
  Country: CZ (occurrence: CZ)
  Receive Date: 20230621
  Receipt Date: 20230621
  Transmission Date: 20230721
  Serious: Yes (Other)
  Sender: FDA-Public Use
  Company Number: None

PATIENT
  Age: 81 Year
  Sex: Female
  Weight: 65 kg

DRUGS (6)
  1. TYGACIL [Suspect]
     Active Substance: TIGECYCLINE
     Indication: Clostridial sepsis
     Dosage: INITIAL DOSE 100 MG, THEN 50 MG EVERY 12 HOURS, THERAPY WAS STOPPED INDEPENDENT OF REACTION
     Route: 042
     Dates: start: 20230530, end: 20230604
  2. VENTOLIN [Concomitant]
     Active Substance: ALBUTEROL SULFATE
     Indication: Asthma
     Dosage: CHRONIC MEDICATION, 3 TIMES DAILY
     Route: 055
  3. DICLOFENAC SODIUM [Concomitant]
     Active Substance: DICLOFENAC SODIUM
     Indication: Pain
     Dosage: 75 MG
     Route: 048
     Dates: start: 20230529
  4. VANCOMYCIN [Concomitant]
     Active Substance: VANCOMYCIN
     Indication: Clostridium difficile infection
     Dosage: 125 MG, 4X/DAY
     Route: 048
     Dates: start: 20230529
  5. SOLU-MEDROL [Concomitant]
     Active Substance: METHYLPREDNISOLONE SODIUM SUCCINATE
     Indication: Asthma
     Dosage: 40 MG
     Route: 042
     Dates: start: 20230530, end: 20230605
  6. FENOFIX [Concomitant]
     Indication: Hyperlipidaemia
     Dosage: 267 MG
     Route: 048

REACTIONS (2)
  - Hyperkalaemia [Recovering/Resolving]
  - Hyperuricaemia [Recovering/Resolving]

NARRATIVE: CASE EVENT DATE: 20230604
